FAERS Safety Report 23930459 (Version 1)
Quarter: 2024Q2

REPORT INFORMATION
  Report Type: Report from Study
  Country: US (occurrence: US)
  Receive Date: 20240602
  Receipt Date: 20240602
  Transmission Date: 20240716
  Serious: Yes (Death)
  Sender: FDA-Public Use
  Company Number: US-ABBVIE-5785143

PATIENT
  Sex: Male

DRUGS (2)
  1. SKYRIZI [Suspect]
     Active Substance: RISANKIZUMAB-RZAA
     Indication: Product used for unknown indication
     Route: 058
     Dates: start: 20230110
  2. MOUNJARO [Suspect]
     Active Substance: TIRZEPATIDE
     Indication: Weight increased
     Dosage: MOUNJARO INJECTABLE INCREASED THE DOSE TO 7 MG
     Route: 065

REACTIONS (1)
  - Hepatic cirrhosis [Fatal]
